FAERS Safety Report 15888611 (Version 1)
Quarter: 2019Q1

REPORT INFORMATION
  Report Type: Spontaneous
  Country: US (occurrence: US)
  Receive Date: 20190129
  Receipt Date: 20190129
  Transmission Date: 20190417
  Serious: Yes (Disabling, Other)
  Sender: FDA-Public Use
  Company Number: None

PATIENT
  Age: 58 Year
  Sex: Female
  Weight: 67.5 kg

DRUGS (13)
  1. MATAXAL [Concomitant]
  2. IMMITREX [Concomitant]
  3. TYLENOL [Concomitant]
     Active Substance: ACETAMINOPHEN
  4. DEXTROAMPHET SACCHARAT, AMPHET ASPARTATE, DEXTROAMPHET SULFATE AND AMPHET SULFAT [Suspect]
     Active Substance: AMPHETAMINE ASPARTATE\AMPHETAMINE SULFATE\DEXTROAMPHETAMINE SACCHARATE\DEXTROAMPHETAMINE SULFATE
     Indication: ATTENTION DEFICIT/HYPERACTIVITY DISORDER
     Dosage: ?          QUANTITY:30 TABLET(S);?
     Route: 048
  5. GABAPENTIN. [Concomitant]
     Active Substance: GABAPENTIN
  6. FLECTOR STEROID PATCHES [Concomitant]
  7. TURMERIC W CURCUMIN [Concomitant]
  8. VITAMIN C [Concomitant]
     Active Substance: ASCORBIC ACID
  9. CLONOPIN [Concomitant]
     Active Substance: CLONAZEPAM
  10. MILK THISTLE [Concomitant]
     Active Substance: DIETARY SUPPLEMENT\HERBALS\MILK THISTLE
  11. ZINC. [Concomitant]
     Active Substance: ZINC
  12. ASHWAGANDA [Concomitant]
  13. TIZANIDINE. [Concomitant]
     Active Substance: TIZANIDINE

REACTIONS (13)
  - Emotional distress [None]
  - Fall [None]
  - Drug ineffective [None]
  - Movement disorder [None]
  - Anxiety [None]
  - Hunger [None]
  - Product substitution issue [None]
  - Fatigue [None]
  - Spinal cord compression [None]
  - Product physical consistency issue [None]
  - Product complaint [None]
  - Cognitive disorder [None]
  - Nervous system disorder [None]

NARRATIVE: CASE EVENT DATE: 20190129
